FAERS Safety Report 7128146-8 (Version None)
Quarter: 2010Q4

REPORT INFORMATION
  Report Type: 
  Country: None (occurrence: None)
  Receive Date: 20101130
  Receipt Date: 20101126
  Transmission Date: 20110411
  Serious: Yes (Life-Threatening, Hospitalization, Other)
  Sender: FDA-Public Use
  Company Number: RS-PFIZER INC-2010145864

PATIENT

DRUGS (1)
  1. PREPIDIL [Suspect]
     Indication: LABOUR INDUCTION
     Dosage: 0.5 MG, SINGLE, GEL 3G
     Route: 064
     Dates: start: 20101011, end: 20101011

REACTIONS (2)
  - BRADYCARDIA FOETAL [None]
  - NEONATAL ASPHYXIA [None]
